FAERS Safety Report 15489573 (Version 1)
Quarter: 2018Q4

REPORT INFORMATION
  Report Type: Spontaneous
  Country: US (occurrence: US)
  Receive Date: 20181004
  Receipt Date: 20181004
  Transmission Date: 20190205
  Serious: No
  Sender: FDA-Public Use
  Company Number: None

PATIENT
  Age: 67 Year
  Sex: Male

DRUGS (2)
  1. OTEZLA [Suspect]
     Active Substance: APREMILAST
  2. STELARA [Suspect]
     Active Substance: USTEKINUMAB
     Dates: start: 201804

REACTIONS (3)
  - Anxiety [None]
  - Nausea [None]
  - Weight increased [None]

NARRATIVE: CASE EVENT DATE: 20181003
